FAERS Safety Report 21493760 (Version 1)
Quarter: 2022Q4

REPORT INFORMATION
  Report Type: Spontaneous
  Country: FR (occurrence: FR)
  Receive Date: 20221021
  Receipt Date: 20221021
  Transmission Date: 20230113
  Serious: Yes (Hospitalization)
  Sender: FDA-Public Use
  Company Number: None

PATIENT
  Age: 56 Year
  Sex: Female
  Weight: 43.5 kg

DRUGS (13)
  1. PRAVASTATIN SODIUM [Suspect]
     Active Substance: PRAVASTATIN SODIUM
     Indication: Dyslipidaemia
     Dosage: UNIT DOSE : 20 MG, FREQUENCY TIME : 1 DAY, DURATION : 7 DAY
     Dates: start: 2022, end: 20220915
  2. VALPROATE SODIUM [Suspect]
     Active Substance: VALPROATE SODIUM
     Indication: Bipolar disorder
     Dosage: DEPAKINE 200 MG/ML, ORAL SOLUTION, FREQUENCY TIME : 1 DAY, DURATION : 8 DAY,
     Dates: start: 20220818, end: 20220826
  3. VALPROATE SODIUM [Suspect]
     Active Substance: VALPROATE SODIUM
     Dosage: FREQUENCY TIME : 1 DAY, DURATION : 6 DAYS, UNIT DOSE : 250 MG, STRENGTH : 200 MG/ML
     Dates: start: 20220728, end: 20220801
  4. VALPROATE SODIUM [Suspect]
     Active Substance: VALPROATE SODIUM
     Dosage: , DURATION : 19 DAYS, UNIT DOSE : 1250 MG, FREQUENCY TIME : 1DAY
     Dates: start: 20220827, end: 20220915
  5. VALPROATE SODIUM [Suspect]
     Active Substance: VALPROATE SODIUM
     Dosage: UNIT DOSE : 750 MG, FREQUENCY TIME : 1 DAY, DURATION : 7 DAYS, STRENGTH: 200 MG/ML
     Dates: start: 20220810, end: 20220817
  6. VALPROATE SODIUM [Suspect]
     Active Substance: VALPROATE SODIUM
     Dosage: FREQUENCY TIME : 1 DAY, DURATION : 7 DAYS, UNIT DOSE : 500 MG
     Dates: start: 20220802, end: 20220809
  7. VALIUM [Suspect]
     Active Substance: DIAZEPAM
     Indication: Anxiety
     Dosage: THERAPY END DATE : NASK, FREQUENCY TIME : 1 DAY, DURATION : 7 DAYS, UNIT DOSE :10MG, VALIUM 1 PER CE
     Dates: start: 20220730
  8. NEO-MERCAZOLE [Suspect]
     Active Substance: CARBIMAZOLE
     Indication: Hyperthyroidism
     Dosage: DURATION : 6 MONTH, FREQUENCY TIME : 1 DAY, UNIT DOSE: 5 MG
     Dates: start: 202203, end: 20220915
  9. TRIMEPRAZINE [Suspect]
     Active Substance: TRIMEPRAZINE
     Indication: Sleep disorder
     Dosage: THERALENE 4 PER CENT, ORAL SOLUTION IN DROPS, FREQUENCY TIME : 1 DAY, DURATION : 7 DAYS, UNIT DOSE :
     Dates: start: 20220802, end: 20220911
  10. TRIMEPRAZINE [Suspect]
     Active Substance: TRIMEPRAZINE
     Dosage: THERALENE 4 PER CENT, ORAL SOLUTION IN DROPS, THERAPY END DATE : NASK, FREQUENCY TIME : 1 DAY, DURAT
     Dates: start: 20220912
  11. LOXAPINE [Suspect]
     Active Substance: LOXAPINE
     Indication: Sedation
     Dosage: THERAPY END DATE : NASK, DURATION : 7 DAYS
     Dates: start: 20220728
  12. CALCIDOSE [Concomitant]
     Indication: Osteoporosis prophylaxis
     Dosage: DURATION: 7 DAY
     Dates: start: 2022
  13. TROPATEPINE HYDROCHLORIDE [Concomitant]
     Active Substance: TROPATEPINE HYDROCHLORIDE
     Indication: Parkinsonism
     Dosage: UNIT DOSE : 20 MG, FREQUENCY TIME : 1 DAY, DURATION : 7 DAY
     Dates: start: 20220916

REACTIONS (1)
  - Cholestatic liver injury [Not Recovered/Not Resolved]

NARRATIVE: CASE EVENT DATE: 20220914
